FAERS Safety Report 8341485-8 (Version None)
Quarter: 2012Q2

REPORT INFORMATION
  Report Type: 
  Country: None (occurrence: None)
  Receive Date: 20120507
  Receipt Date: 20120501
  Transmission Date: 20120825
  Serious: Yes (Hospitalization, Other)
  Sender: FDA-Public Use
  Company Number: PHHY2012TR037364

PATIENT
  Age: 26 Year
  Sex: Female

DRUGS (2)
  1. HYDROXYZINE [Suspect]
     Dosage: 60 DF, UNK
     Route: 048
  2. AMITRIPTYLINE HCL [Suspect]
     Dosage: 200 DF, UNK

REACTIONS (8)
  - LOSS OF CONSCIOUSNESS [None]
  - VENTRICULAR FIBRILLATION [None]
  - SUICIDE ATTEMPT [None]
  - CARDIO-RESPIRATORY ARREST [None]
  - ARRHYTHMIA [None]
  - SLOW RESPONSE TO STIMULI [None]
  - GRAND MAL CONVULSION [None]
  - INTENTIONAL OVERDOSE [None]
